FAERS Safety Report 23029093 (Version 1)
Quarter: 2023Q4

REPORT INFORMATION
  Report Type: Spontaneous
  Country: US (occurrence: None)
  Receive Date: 20231003
  Receipt Date: 20231003
  Transmission Date: 20240109
  Serious: Yes (Other)
  Sender: FDA-Public Use
  Company Number: None

PATIENT
  Age: 16 Year
  Sex: Male
  Weight: 58.5 kg

DRUGS (1)
  1. COMPLEMENTARY SUPPLEMENT, OTHER [Suspect]
     Active Substance: COMPLEMENTARY SUPPLEMENT, OTHER
     Indication: Sinus disorder
     Dosage: OTHER QUANTITY : 2 SPRAY(S);?FREQUENCY : DAILY;?OTHER ROUTE : NASAL SPRAY;?
     Route: 050
     Dates: start: 20230903, end: 20231003

REACTIONS (5)
  - Productive cough [None]
  - Sinus congestion [None]
  - Oropharyngeal pain [None]
  - Malaise [None]
  - Headache [None]

NARRATIVE: CASE EVENT DATE: 20230924
